FAERS Safety Report 19163549 (Version 1)
Quarter: 2021Q2

REPORT INFORMATION
  Report Type: Spontaneous
  Country: JP (occurrence: JP)
  Receive Date: 20210421
  Receipt Date: 20210421
  Transmission Date: 20210717
  Serious: Yes (Life-Threatening, Hospitalization)
  Sender: FDA-Public Use
  Company Number: JP-TEVA-2021-JP-1902210

PATIENT
  Age: 35 Year
  Sex: Male

DRUGS (12)
  1. BISOPROLOL [Suspect]
     Active Substance: BISOPROLOL
     Dosage: 3.125 MILLIGRAM DAILY;
     Route: 065
  2. BISOPROLOL [Suspect]
     Active Substance: BISOPROLOL
     Dosage: 5 MILLIGRAM DAILY;
     Route: 065
  3. DOBUTAMINE [Concomitant]
     Active Substance: DOBUTAMINE HYDROCHLORIDE
     Indication: ARRHYTHMIA
  4. AMIODARONE [Suspect]
     Active Substance: AMIODARONE
     Indication: ARRHYTHMIA
  5. BISOPROLOL [Suspect]
     Active Substance: BISOPROLOL
     Indication: CARDIAC FAILURE ACUTE
     Dosage: 1.875 MILLIGRAM DAILY;
     Route: 065
  6. DOBUTAMINE [Concomitant]
     Active Substance: DOBUTAMINE HYDROCHLORIDE
     Indication: CARDIAC FAILURE ACUTE
     Route: 065
  7. CARVEDILOL. [Suspect]
     Active Substance: CARVEDILOL
     Indication: CARDIAC FAILURE ACUTE
     Dosage: 1.25 MILLIGRAM DAILY;
     Route: 065
  8. AMIODARONE [Suspect]
     Active Substance: AMIODARONE
     Indication: CARDIAC FAILURE ACUTE
     Dosage: 24 MG/H
     Route: 065
  9. MILRINONE [Concomitant]
     Active Substance: MILRINONE
     Indication: CARDIAC FAILURE ACUTE
     Route: 065
  10. MILRINONE [Concomitant]
     Active Substance: MILRINONE
     Indication: ARRHYTHMIA
  11. SPIRONOLACTONE. [Concomitant]
     Active Substance: SPIRONOLACTONE
     Indication: CARDIAC FAILURE ACUTE
     Dosage: 25 MILLIGRAM DAILY;
     Route: 065
  12. ENALAPRIL [Concomitant]
     Active Substance: ENALAPRIL
     Indication: CARDIAC FAILURE ACUTE
     Dosage: 2.5 MILLIGRAM DAILY;
     Route: 065

REACTIONS (2)
  - Drug ineffective [Recovered/Resolved]
  - Supraventricular tachycardia [Recovered/Resolved]
